FAERS Safety Report 21290928 (Version 1)
Quarter: 2022Q3

REPORT INFORMATION
  Report Type: Spontaneous
  Country: US (occurrence: US)
  Receive Date: 20220903
  Receipt Date: 20220903
  Transmission Date: 20221026
  Serious: No
  Sender: FDA-Public Use
  Company Number: US-TEVA-2022-US-2068107

PATIENT
  Sex: Female

DRUGS (1)
  1. COPAXONE [Suspect]
     Active Substance: GLATIRAMER ACETATE
     Indication: Product used for unknown indication
     Dosage: 40 MG / ML
     Route: 065

REACTIONS (5)
  - Flushing [Unknown]
  - Nausea [Unknown]
  - Back pain [Unknown]
  - Chest pain [Unknown]
  - Dyspnoea [Unknown]
